FAERS Safety Report 4722338-0 (Version None)
Quarter: 2005Q3

REPORT INFORMATION
  Report Type: 
  Country: None (occurrence: None)
  Receive Date: 20050722
  Receipt Date: 20050228
  Transmission Date: 20060218
  Serious: No
  Sender: FDA-Public Use
  Company Number: US-GLAXOSMITHKLINE-A0547593A

PATIENT
  Age: 38 Year
  Sex: Female

DRUGS (2)
  1. AVANDIA [Suspect]
     Indication: INSULIN RESISTANCE
     Dosage: 2MG SEE DOSAGE TEXT
     Route: 048
     Dates: start: 20040901, end: 20050201
  2. SPIRONOLACTONE [Concomitant]
     Route: 065

REACTIONS (5)
  - DEHYDRATION [None]
  - OEDEMA [None]
  - RASH MACULAR [None]
  - VEIN DISORDER [None]
  - WEIGHT INCREASED [None]
